FAERS Safety Report 9929126 (Version 1)
Quarter: 2014Q1

REPORT INFORMATION
  Report Type: Spontaneous
  Country: NL (occurrence: None)
  Receive Date: 20140225
  Receipt Date: 20140225
  Transmission Date: 20141002
  Serious: Yes (Hospitalization, Disabling)
  Sender: FDA-Public Use
  Company Number: NL-INDICUS PHARMA-000233

PATIENT
  Age: 62 Year
  Sex: Female

DRUGS (4)
  1. METFORMIN HYDROCHLORIDE (METFORMIN HYDROCHLORIDE) [Suspect]
     Indication: PRODUCT USED FOR UNKNOWN INDICATION
  2. ATORVASTATIN (ATORVASTATIN) [Concomitant]
  3. GLICLAZIDE (GLICLAZIDE) [Concomitant]
  4. ENALAPRIL (ENALAPRIL) [Concomitant]

REACTIONS (10)
  - Renal failure acute [None]
  - Lactic acidosis [None]
  - Toxicity to various agents [None]
  - Abdominal pain [None]
  - Diarrhoea [None]
  - Hypophagia [None]
  - Blood pressure decreased [None]
  - Mucosal dryness [None]
  - Metabolic acidosis [None]
  - Continuous haemodiafiltration [None]
